FAERS Safety Report 24189364 (Version 2)
Quarter: 2025Q1

REPORT INFORMATION
  Report Type: Report from Study
  Country: US (occurrence: US)
  Receive Date: 20240808
  Receipt Date: 20250313
  Transmission Date: 20250408
  Serious: Yes (Other)
  Sender: MERCK SHARP & DOHME LLC
  Company Number: US-009507513-2408USA000803

PATIENT
  Age: 49 Year
  Sex: Female

DRUGS (14)
  1. WINREVAIR [Suspect]
     Active Substance: SOTATERCEPT-CSRK
     Indication: Pulmonary arterial hypertension
     Dosage: DOSE DESCRIPTION : Q3W, VOLUME: 1.2 ML, STRENGTH: 60 MG
     Route: 058
     Dates: start: 202406
  2. WINREVAIR [Suspect]
     Active Substance: SOTATERCEPT-CSRK
  3. WINREVAIR [Suspect]
     Active Substance: SOTATERCEPT-CSRK
  4. WINREVAIR [Suspect]
     Active Substance: SOTATERCEPT-CSRK
  5. WINREVAIR [Suspect]
     Active Substance: SOTATERCEPT-CSRK
  6. WINREVAIR [Suspect]
     Active Substance: SOTATERCEPT-CSRK
  7. WINREVAIR [Suspect]
     Active Substance: SOTATERCEPT-CSRK
  8. WINREVAIR [Suspect]
     Active Substance: SOTATERCEPT-CSRK
  9. WINREVAIR [Suspect]
     Active Substance: SOTATERCEPT-CSRK
  10. WINREVAIR [Suspect]
     Active Substance: SOTATERCEPT-CSRK
  11. WINREVAIR [Suspect]
     Active Substance: SOTATERCEPT-CSRK
  12. WINREVAIR [Suspect]
     Active Substance: SOTATERCEPT-CSRK
  13. TREPROSTINIL [Concomitant]
     Active Substance: TREPROSTINIL
     Route: 042
  14. FLOLAN STERILE DILUENT [Concomitant]

REACTIONS (9)
  - Sjogren^s syndrome [Not Recovered/Not Resolved]
  - Skin exfoliation [Recovered/Resolved]
  - Pruritus [Recovered/Resolved]
  - Pain in extremity [Not Recovered/Not Resolved]
  - Erythema [Not Recovered/Not Resolved]
  - Ecchymosis [Not Recovered/Not Resolved]
  - Peripheral swelling [Not Recovered/Not Resolved]
  - Dermatitis [Unknown]
  - Erythema [Recovered/Resolved]

NARRATIVE: CASE EVENT DATE: 20240730
